FAERS Safety Report 24209653 (Version 2)
Quarter: 2024Q3

REPORT INFORMATION
  Report Type: Spontaneous
  Country: NL (occurrence: NL)
  Receive Date: 20240814
  Receipt Date: 20240902
  Transmission Date: 20241016
  Serious: Yes (Hospitalization)
  Sender: TEVA
  Company Number: None

PATIENT
  Age: 69 Year
  Sex: Female
  Weight: 44 kg

DRUGS (2)
  1. DOXYCYCLINE [Suspect]
     Active Substance: DOXYCYCLINE\DOXYCYCLINE HYCLATE
     Indication: Antibiotic prophylaxis
     Dosage: 1 X PER DAY 1 PIECE, BRAND NAME NOT SPECIFIED
     Route: 065
     Dates: start: 20190502
  2. IMMUNOGLOBULIN [Concomitant]
     Indication: Product used for unknown indication
     Dosage: DOSAGE: 100 MG/ML INFUSION FLUID, IMMUNOGLOBULIN NORMAL INFVLST / BRAND NAME NOT SPECIFIED
     Route: 065

REACTIONS (2)
  - Gastric ulcer haemorrhage [Recovering/Resolving]
  - Ulcerative gastritis [Recovering/Resolving]
